FAERS Safety Report 9503605 (Version 1)
Quarter: 2013Q3

REPORT INFORMATION
  Report Type: Spontaneous
  Country: US (occurrence: None)
  Receive Date: 20130905
  Receipt Date: 20130905
  Transmission Date: 20140515
  Serious: Yes (Other)
  Sender: FDA-Public Use
  Company Number: None

PATIENT
  Age: 55 Year
  Sex: Female

DRUGS (14)
  1. DIAZEPAM [Suspect]
     Indication: BACK INJURY
     Dosage: 2 MG 45(2 WEEK SUPPLY) EVERY 8HRS- 3 PER DAY MOUTH
     Route: 048
     Dates: start: 20130617
  2. DIAZEPAM [Suspect]
     Indication: NECK INJURY
     Dosage: 2 MG 45(2 WEEK SUPPLY) EVERY 8HRS- 3 PER DAY MOUTH
     Route: 048
     Dates: start: 20130617
  3. DIAZEPAM [Suspect]
     Indication: JOINT INJURY
     Dosage: 2 MG 45(2 WEEK SUPPLY) EVERY 8HRS- 3 PER DAY MOUTH
     Route: 048
     Dates: start: 20130617
  4. DIAZEPAM [Suspect]
     Indication: PAIN
     Dosage: 2 MG 45(2 WEEK SUPPLY) EVERY 8HRS- 3 PER DAY MOUTH
     Route: 048
     Dates: start: 20130617
  5. DIAZEPAM [Suspect]
     Indication: MUSCLE SPASMS
     Dosage: 2 MG 45(2 WEEK SUPPLY) EVERY 8HRS- 3 PER DAY MOUTH
     Route: 048
     Dates: start: 20130617
  6. NORCO [Concomitant]
  7. DILTIAZEM HCL COATED BEADS [Concomitant]
  8. PRAVASTATIN [Concomitant]
  9. FENOFIBRATE [Concomitant]
  10. POLYETHYLENE GLYCOL [Concomitant]
  11. NF POWDER [Concomitant]
  12. LOSE DOSE ASPIRIN [Concomitant]
  13. SUPER STREGNTH MULTI VITAMIN IRON FREE [Concomitant]
  14. OMEGA 3 KRILL OIL [Concomitant]

REACTIONS (5)
  - Pain [None]
  - Muscle spasms [None]
  - Condition aggravated [None]
  - Product quality issue [None]
  - Drug screen negative [None]
